FAERS Safety Report 4977472-7 (Version None)
Quarter: 2006Q2

REPORT INFORMATION
  Report Type: 
  Country: None (occurrence: None)
  Receive Date: 20060413
  Receipt Date: 20060331
  Transmission Date: 20061013
  Serious: Yes (Other)
  Sender: FDA-Public Use
  Company Number: 2006-DE-01711GD

PATIENT
  Age: 49 Year
  Sex: Female

DRUGS (3)
  1. ZIDOVUDINE [Suspect]
     Indication: HIV INFECTION
  2. TENOFOVIR (TENOFOVIR) [Suspect]
     Indication: HIV INFECTION
  3. ATAZANAVIR (ATAZANAVIR) [Suspect]
     Indication: HIV INFECTION

REACTIONS (2)
  - ALANINE AMINOTRANSFERASE INCREASED [None]
  - GAMMA-GLUTAMYLTRANSFERASE INCREASED [None]
